FAERS Safety Report 5328076-8 (Version None)
Quarter: 2007Q2

REPORT INFORMATION
  Report Type: 
  Country: None (occurrence: None)
  Receive Date: 20070517
  Receipt Date: 20070514
  Transmission Date: 20071010
  Serious: Yes (Hospitalization, Disabling)
  Sender: FDA-Public Use
  Company Number: VE-MERCK-0705VEN00001

PATIENT
  Age: 63 Year
  Sex: Female
  Weight: 50 kg

DRUGS (4)
  1. VYTORIN [Suspect]
     Indication: HYPERCHOLESTEROLAEMIA
     Route: 048
     Dates: start: 20070301, end: 20070401
  2. METFORMIN HYDROCHLORIDE [Concomitant]
     Route: 048
  3. PENTOXIFYLLINE [Concomitant]
     Route: 065
  4. GLYBURIDE [Concomitant]
     Route: 065

REACTIONS (7)
  - ASTHENIA [None]
  - BACK PAIN [None]
  - HYPOTENSION [None]
  - JAUNDICE [None]
  - MYOCARDIAL INFARCTION [None]
  - SHOCK [None]
  - VERTIGO [None]
